FAERS Safety Report 15924460 (Version 2)
Quarter: 2019Q1

REPORT INFORMATION
  Report Type: Spontaneous
  Country: NL (occurrence: NL)
  Receive Date: 20190206
  Receipt Date: 20190311
  Transmission Date: 20190417
  Serious: Yes (Other)
  Sender: FDA-Public Use
  Company Number: NL-AUROBINDO-AUR-APL-2019-005399

PATIENT

DRUGS (21)
  1. TRACYDAL [Suspect]
     Active Substance: TRANYLCYPROMINE SULFATE
     Dosage: 10 MILLIGRAM, DAILY (MORNING, AFTER SOME DAYS DISCONTINUED)
     Route: 065
     Dates: start: 201707, end: 201707
  2. TRACYDAL [Suspect]
     Active Substance: TRANYLCYPROMINE SULFATE
     Dosage: 20 MILLIGRAM, DAILY (1 TABLET (20 MG) PER DAY IN THE MORNING)
     Route: 065
     Dates: start: 2017, end: 2017
  3. TRACYDAL [Suspect]
     Active Substance: TRANYLCYPROMINE SULFATE
     Dosage: 10 MILLIGRAM, DAILY (HALF A TABLET (10 MG) A DAY IN THE MORNING)
     Route: 065
     Dates: start: 201707, end: 2017
  4. TRACYDAL [Suspect]
     Active Substance: TRANYLCYPROMINE SULFATE
     Dosage: 50 MILLIGRAM, DAILY (2.5 TABLETS A DAY IN THE MORNING)
     Route: 065
     Dates: start: 201901
  5. QUETIAPINE. [Suspect]
     Active Substance: QUETIAPINE
     Indication: BIPOLAR DISORDER
     Dosage: 25 MILLIGRAM, DAILY
     Route: 065
  6. TRACYDAL [Suspect]
     Active Substance: TRANYLCYPROMINE SULFATE
     Dosage: 50 MILLIGRAM, DAILY (2.5 TABLETS (50 MG) PER DAY IN THE MORNING)
     Route: 065
     Dates: start: 2017, end: 2017
  7. PRIADEL [Concomitant]
     Active Substance: LITHIUM
     Indication: MOOD SWINGS
     Dosage: 1000 MILLIGRAM, DAILY
     Route: 065
  8. TRACYDAL [Suspect]
     Active Substance: TRANYLCYPROMINE SULFATE
     Dosage: 20 MILLIGRAM, EVERY OTHER DAY (2 TABLETS (40 MG) PER DAY IN THE MORNING)
     Route: 065
     Dates: start: 2017, end: 2017
  9. EUTHYROX [Concomitant]
     Active Substance: LEVOTHYROXINE SODIUM
     Indication: HYPERTHYROIDISM
     Dosage: 112 MICROGRAM, DAILY
     Route: 065
  10. TRACYDAL [Suspect]
     Active Substance: TRANYLCYPROMINE SULFATE
     Indication: BIPOLAR II DISORDER
     Dosage: 30 MILLIGRAM, DAILY (1.5 TABLETS (30 MG) PER DAY IN THE MORNING)
     Route: 065
     Dates: start: 2017, end: 2017
  11. TRACYDAL [Suspect]
     Active Substance: TRANYLCYPROMINE SULFATE
     Dosage: 20 MILLIGRAM, EVERY OTHER DAY (2 TABLETS (40 MG) PER DAY IN THE MORNING)
     Route: 065
     Dates: start: 2017, end: 201801
  12. TRACYDAL [Suspect]
     Active Substance: TRANYLCYPROMINE SULFATE
     Dosage: 10 MILLIGRAM, DAILY (0.5 MG TABLETS IN THE MORNING)
     Route: 065
     Dates: start: 201808, end: 201809
  13. TRACYDAL [Suspect]
     Active Substance: TRANYLCYPROMINE SULFATE
     Dosage: 50 MILLIGRAM, DAILY (2.5 TABLETS (50 MG) PER DAY IN THE MORNING)
     Route: 065
     Dates: start: 2017, end: 2017
  14. DOSTINEX [Concomitant]
     Active Substance: CABERGOLINE
     Dosage: 0.75 MILLIGRAM, 3 WEEK
     Route: 065
  15. QUETIAPINE. [Interacting]
     Active Substance: QUETIAPINE
     Indication: SLEEP DISORDER
  16. TRACYDAL [Suspect]
     Active Substance: TRANYLCYPROMINE SULFATE
     Dosage: 20 MILLIGRAM, DAILY (1 TABLET PER DAY IN THE MORNING)
     Route: 065
     Dates: start: 201809, end: 201810
  17. TRACYDAL [Suspect]
     Active Substance: TRANYLCYPROMINE SULFATE
     Dosage: 30 MILLIGRAM, DAILY, (1.5 TABLETS A DAY IN THE MORNING)
     Route: 065
     Dates: start: 201810, end: 201811
  18. DOSTINEX [Concomitant]
     Active Substance: CABERGOLINE
     Indication: PROLACTIN-PRODUCING PITUITARY TUMOUR
     Dosage: 0.25 MILLIGRAM, 3 WEEK
     Route: 065
  19. TRACYDAL [Suspect]
     Active Substance: TRANYLCYPROMINE SULFATE
     Dosage: 20 MILLIGRAM,3DAY (3 TABLETS (60 MG) PER DAY IN THE MORINING)
     Route: 065
     Dates: start: 2017, end: 2017
  20. TRACYDAL [Suspect]
     Active Substance: TRANYLCYPROMINE SULFATE
     Dosage: 20 MILLIGRAM, EVERY OTHER DAY (2 TABLETS A DAY IN THE MORNING)
     Route: 065
     Dates: start: 201811, end: 201901
  21. PRIADEL [Concomitant]
     Active Substance: LITHIUM
     Indication: BIPOLAR DISORDER

REACTIONS (11)
  - Hypertensive crisis [Recovered/Resolved]
  - Chest pain [Unknown]
  - Dizziness [Unknown]
  - Bradycardia [Recovered/Resolved]
  - Hypomania [Unknown]
  - Palpitations [Not Recovered/Not Resolved]
  - Agitation [Unknown]
  - Hypertension [Not Recovered/Not Resolved]
  - Feeling hot [Not Recovered/Not Resolved]
  - Contraindicated product administered [Not Recovered/Not Resolved]
  - Hyperhidrosis [Not Recovered/Not Resolved]

NARRATIVE: CASE EVENT DATE: 201707
